FAERS Safety Report 19452302 (Version 1)
Quarter: 2021Q2

REPORT INFORMATION
  Report Type: Spontaneous
  Country: US (occurrence: US)
  Receive Date: 20210623
  Receipt Date: 20210623
  Transmission Date: 20210717
  Serious: No
  Sender: FDA-Public Use
  Company Number: US-ACCORD-223789

PATIENT
  Sex: Female

DRUGS (1)
  1. CLONAZEPAM ACCORD [Suspect]
     Active Substance: CLONAZEPAM
     Indication: SLEEP DISORDER
     Dosage: 1 DAILY
     Route: 048

REACTIONS (4)
  - Drug effect less than expected [Unknown]
  - Off label use [Unknown]
  - Product solubility abnormal [Unknown]
  - Insomnia [Not Recovered/Not Resolved]
